FAERS Safety Report 8090785-8 (Version None)
Quarter: 2012Q1

REPORT INFORMATION
  Report Type: 
  Country: None (occurrence: None)
  Receive Date: 20120124
  Receipt Date: 20111229
  Transmission Date: 20120608
  Serious: Yes (Hospitalization, Other)
  Sender: FDA-Public Use
  Company Number: HA11-341-AE

PATIENT
  Age: 14 Year
  Sex: Male
  Weight: 48.0813 kg

DRUGS (6)
  1. ZYRTEC [Concomitant]
  2. BENADRYL [Concomitant]
  3. PREDNISONE TAB [Concomitant]
  4. SULFAMETHOXAZOLE AND TRIMETHOPRIM [Suspect]
     Indication: STAPHYLOCOCCAL INFECTION
     Dosage: 1 TABLET, 12H, ORAL
     Route: 048
     Dates: start: 20101231, end: 20110121
  5. ZANTAC [Concomitant]
  6. SULFAMETHOXAZOLE AND TRIMETHOPRIM [Suspect]
     Indication: STAPHYLOCOCCAL INFECTION
     Dosage: 1 TABLETY, Q12H, ORAL
     Route: 048
     Dates: start: 20101217, end: 20101226

REACTIONS (2)
  - STEVENS-JOHNSON SYNDROME [None]
  - STAPHYLOCOCCAL INFECTION [None]
